FAERS Safety Report 6157778-9 (Version None)
Quarter: 2009Q2

REPORT INFORMATION
  Report Type: 
  Country: None (occurrence: None)
  Receive Date: 20090414
  Receipt Date: 20090402
  Transmission Date: 20091009
  Serious: Yes (Other)
  Sender: FDA-Public Use
  Company Number: 2009002870

PATIENT
  Age: 21 Year
  Sex: Male

DRUGS (1)
  1. FENTORA [Suspect]
     Dosage: BU
     Route: 002

REACTIONS (5)
  - CYANOSIS [None]
  - DRUG DIVERSION [None]
  - RESPIRATORY DEPRESSION [None]
  - SELF-MEDICATION [None]
  - VOMITING PROJECTILE [None]
